FAERS Safety Report 7374817-8 (Version None)
Quarter: 2011Q1

REPORT INFORMATION
  Report Type: 
  Country: None (occurrence: None)
  Receive Date: 20110325
  Receipt Date: 20101223
  Transmission Date: 20110831
  Serious: No
  Sender: FDA-Public Use
  Company Number: US-MYLANLABS-2010S1023691

PATIENT
  Sex: Male

DRUGS (3)
  1. FENTANYL-100 [Suspect]
     Indication: NECK PAIN
     Dosage: CHANGED Q48H
     Route: 062
     Dates: start: 20090101, end: 20101221
  2. FENTANYL-100 [Suspect]
     Dosage: CHANGED Q48H
     Route: 062
     Dates: start: 20101223
  3. FENTANYL-100 [Suspect]
     Dosage: CHANGED Q48H
     Route: 062
     Dates: start: 20101222, end: 20101222

REACTIONS (4)
  - PALPITATIONS [None]
  - DIPLOPIA [None]
  - DRUG EFFECT INCREASED [None]
  - HYPERHIDROSIS [None]
